FAERS Safety Report 9523566 (Version 6)
Quarter: 2019Q4

REPORT INFORMATION
  Report Type: Spontaneous
  Country: FR (occurrence: FR)
  Receive Date: 20130913
  Receipt Date: 20191105
  Transmission Date: 20200122
  Serious: Yes (Hospitalization, Other)
  Sender: FDA-Public Use
  Company Number: FR-TEVA-432421USA

PATIENT
  Age: 82 Year
  Sex: Female

DRUGS (16)
  1. MOTILIUM [Suspect]
     Active Substance: DOMPERIDONE
     Route: 048
     Dates: start: 20130704, end: 20130819
  2. LASILIX [Concomitant]
     Active Substance: FUROSEMIDE
     Dates: start: 20130801
  3. LASILIX [Concomitant]
     Active Substance: FUROSEMIDE
     Indication: PRODUCT USED FOR UNKNOWN INDICATION
     Route: 065
     Dates: start: 20130801
  4. TAGAMET [Concomitant]
     Active Substance: CIMETIDINE
     Indication: PRODUCT USED FOR UNKNOWN INDICATION
  5. LEVACT [Suspect]
     Active Substance: BENDAMUSTINE HYDROCHLORIDE
     Indication: B-CELL LYMPHOMA
     Dosage: REGIMEN #1
     Route: 041
     Dates: start: 20130703
  6. ZINNAT [Suspect]
     Active Substance: CEFUROXIME
     Indication: PYREXIA
     Route: 065
     Dates: start: 20130818
  7. METHYLPREDNISOLONE. [Suspect]
     Active Substance: METHYLPREDNISOLONE
     Indication: NON-HODGKIN^S LYMPHOMA
  8. AERIUS [Concomitant]
     Indication: FACE OEDEMA
     Dates: start: 20130802
  9. METHYLPREDNISOLONE. [Suspect]
     Active Substance: METHYLPREDNISOLONE
     Indication: B-CELL LYMPHOMA
     Dosage: UNKNOWN/D
     Route: 065
     Dates: start: 201307
  10. MABTHERA [Suspect]
     Active Substance: RITUXIMAB
     Indication: NON-HODGKIN^S LYMPHOMA
     Dosage: REGIMEN # 2
     Route: 042
     Dates: start: 20130731, end: 20130731
  11. CIPLOX [Suspect]
     Active Substance: CIPROFLOXACIN
     Indication: PYREXIA
     Dosage: 500 MILLIGRAM DAILY;
     Route: 048
     Dates: start: 20130818, end: 20130819
  12. LEVACT [Suspect]
     Active Substance: BENDAMUSTINE HYDROCHLORIDE
     Indication: NON-HODGKIN^S LYMPHOMA
     Dosage: REGIMEN #2
     Route: 041
     Dates: start: 20130731, end: 20130801
  13. MABTHERA [Suspect]
     Active Substance: RITUXIMAB
     Indication: B-CELL LYMPHOMA
     Dosage: 750 MG/M2 DAILY; REGIMEN # 1
     Route: 042
     Dates: start: 20130703
  14. MOTILIUM [Suspect]
     Active Substance: DOMPERIDONE
     Indication: PRODUCT USED FOR UNKNOWN INDICATION
     Dosage: 1000 MILLIGRAM DAILY;
     Dates: start: 20130814, end: 20130815
  15. BACTRIM [Suspect]
     Active Substance: SULFAMETHOXAZOLE\TRIMETHOPRIM
     Indication: PRODUCT USED FOR UNKNOWN INDICATION
     Dosage: 1 DF (0.4286), THRICE WEEKLY
     Route: 048
     Dates: start: 20130704, end: 20130819
  16. ATARAX [Concomitant]
     Active Substance: HYDROXYZINE HYDROCHLORIDE
     Indication: PRODUCT USED FOR UNKNOWN INDICATION
     Route: 065
     Dates: start: 20130802

REACTIONS (6)
  - Pancytopenia [Recovering/Resolving]
  - Febrile neutropenia [Recovering/Resolving]
  - Agranulocytosis [Recovered/Resolved]
  - Toxic skin eruption [Recovered/Resolved]
  - Rash maculo-papular [Unknown]
  - Prescribed underdose [Unknown]

NARRATIVE: CASE EVENT DATE: 20130703
